FAERS Safety Report 24093081 (Version 1)
Quarter: 2024Q3

REPORT INFORMATION
  Report Type: Spontaneous
  Country: PL (occurrence: PL)
  Receive Date: 20240715
  Receipt Date: 20240715
  Transmission Date: 20241017
  Serious: Yes (Hospitalization, Other)
  Sender: MYLAN
  Company Number: PL-CHEPLA-2024008235

PATIENT
  Age: 15 Year
  Sex: Female

DRUGS (8)
  1. AMLODIPINE [Suspect]
     Active Substance: AMLODIPINE BESYLATE
     Indication: Hypertension
     Dosage: UNK
     Route: 065
  2. ENOXAPARIN SODIUM [Suspect]
     Active Substance: ENOXAPARIN SODIUM
     Indication: Product used for unknown indication
     Dosage: 10 MILLIGRAM, BID (2 X 10 MG)
     Route: 065
  3. ENOXAPARIN SODIUM [Suspect]
     Active Substance: ENOXAPARIN SODIUM
     Dosage: 5 MILLIGRAM, BID (LONG TERM 2 X 5 MG)
     Route: 065
  4. URAPIDIL [Suspect]
     Active Substance: URAPIDIL
     Indication: Hypertension
     Dosage: UNK
     Route: 065
  5. HEPARIN [Concomitant]
     Active Substance: HEPARIN SODIUM
     Indication: Cardiac ventricular thrombosis
     Dosage: UNK
     Route: 065
  6. SODIUM NITROPRUSSIDE [Concomitant]
     Active Substance: SODIUM NITROPRUSSIDE
     Indication: Hypertension
     Dosage: UNK
     Route: 065
  7. EPINEPHRINE [Concomitant]
     Active Substance: EPINEPHRINE
     Indication: Cardiac arrest
     Dosage: 1 MILLIGRAM
     Route: 065
  8. MILRINONE [Concomitant]
     Active Substance: MILRINONE
     Indication: Hypertension
     Dosage: UNK
     Route: 065

REACTIONS (7)
  - Pneumothorax [Unknown]
  - Polyuria [Unknown]
  - Anaemia [Unknown]
  - Subcutaneous emphysema [Unknown]
  - Cerebral disorder [Unknown]
  - Blood glucose abnormal [Unknown]
  - Pain [Recovering/Resolving]
